FAERS Safety Report 4969854-4 (Version None)
Quarter: 2006Q2

REPORT INFORMATION
  Report Type: 
  Country: None (occurrence: None)
  Receive Date: 20060411
  Receipt Date: 20060307
  Transmission Date: 20061013
  Serious: Yes (Hospitalization)
  Sender: FDA-Public Use
  Company Number: JP-MERCK-0603USA02177

PATIENT
  Age: 61 Year
  Sex: Female

DRUGS (9)
  1. PEPCID [Suspect]
     Indication: NAUSEA
     Route: 048
     Dates: start: 20060131, end: 20060207
  2. PEPCID [Suspect]
     Indication: DIARRHOEA
     Route: 048
     Dates: start: 20060131, end: 20060207
  3. LIPITOR [Suspect]
     Indication: HYPERLIPIDAEMIA
     Route: 065
     Dates: end: 20060207
  4. MUCOSTA [Suspect]
     Indication: NAUSEA
     Route: 048
     Dates: start: 20060131, end: 20060207
  5. MUCOSTA [Suspect]
     Indication: DIARRHOEA
     Route: 048
     Dates: start: 20060131, end: 20060207
  6. [COMPOSITION UNSPECIFIED] [Suspect]
     Route: 048
     Dates: end: 20060207
  7. PRIMPERAN TAB [Suspect]
     Indication: NAUSEA
     Route: 048
     Dates: start: 20060131, end: 20060207
  8. PRIMPERAN TAB [Suspect]
     Indication: DIARRHOEA
     Route: 048
     Dates: start: 20060131, end: 20060207
  9. MEVALOTIN [Concomitant]
     Indication: HYPERLIPIDAEMIA
     Route: 065

REACTIONS (1)
  - HEPATITIS [None]
